FAERS Safety Report 15215436 (Version 6)
Quarter: 2019Q1

REPORT INFORMATION
  Report Type: Spontaneous
  Country: JP (occurrence: JP)
  Receive Date: 20180730
  Receipt Date: 20190214
  Transmission Date: 20190417
  Serious: Yes (Death, Hospitalization, Other)
  Sender: FDA-Public Use
  Company Number: JP-B.I. PHARMACEUTICALS,INC./RIDGEFIELD-2018-NB-004095

PATIENT
  Age: 62 Year
  Sex: Male
  Weight: 53.9 kg

DRUGS (5)
  1. GILOTRIF [Suspect]
     Active Substance: AFATINIB
     Indication: LUNG ADENOCARCINOMA
     Route: 048
     Dates: start: 201503, end: 20161002
  2. AMLODIPINE [Concomitant]
     Active Substance: AMLODIPINE BESYLATE
     Indication: HYPERTENSION
     Route: 048
  3. OLMETEC [Concomitant]
     Active Substance: OLMESARTAN MEDOXOMIL
     Indication: HYPERTENSION
     Route: 048
  4. TAGRISSO [Suspect]
     Active Substance: OSIMERTINIB
     Indication: LUNG ADENOCARCINOMA
     Route: 048
     Dates: start: 20161114, end: 20171002
  5. FLUITRAN [Concomitant]
     Active Substance: TRICHLORMETHIAZIDE
     Indication: HYPERTENSION
     Route: 048
     Dates: end: 201709

REACTIONS (11)
  - Pneumonia [Fatal]
  - Malignant neoplasm progression [Unknown]
  - Rash [Unknown]
  - Paronychia [Unknown]
  - Multiple organ dysfunction syndrome [Fatal]
  - B-cell lymphoma [Fatal]
  - Marginal zone lymphoma [Fatal]
  - Malignant neoplasm progression [Unknown]
  - Pneumonitis [Unknown]
  - Tumour lysis syndrome [Unknown]
  - Drug resistance [Unknown]

NARRATIVE: CASE EVENT DATE: 201503
